FAERS Safety Report 8804876 (Version 1)
Quarter: 2012Q4

REPORT INFORMATION
  Report Type: 
  Country: FR (occurrence: FR)
  Receive Date: 20120924
  Receipt Date: 20120924
  Transmission Date: 20130627
  Serious: Yes (Life-Threatening, Hospitalization)
  Sender: FDA-Public Use
  Company Number: FR-ASTRAZENECA-2012SE73412

PATIENT
  Sex: Female

DRUGS (11)
  1. HYTACAND [Suspect]
     Route: 048
     Dates: end: 20120616
  2. SEROPLEX [Interacting]
     Route: 048
     Dates: end: 20120616
  3. RISPERDAL [Interacting]
     Route: 048
     Dates: end: 20120616
  4. COLCHICINE [Concomitant]
  5. CODOLIPRANE [Concomitant]
  6. TIAPRIDAL [Concomitant]
  7. TRANSIPEG [Concomitant]
  8. LEVOPHTA [Concomitant]
  9. XANAX [Concomitant]
  10. HEMIGOXINE [Concomitant]
  11. INIPOMP [Concomitant]

REACTIONS (5)
  - Drug interaction [Recovered/Resolved]
  - Inappropriate antidiuretic hormone secretion [Recovered/Resolved]
  - Fall [Unknown]
  - Head injury [Unknown]
  - Hyponatraemia [Recovered/Resolved]
